FAERS Safety Report 10052739 (Version 1)
Quarter: 2014Q1

REPORT INFORMATION
  Report Type: Spontaneous
  Country: TR (occurrence: None)
  Receive Date: 20140331
  Receipt Date: 20140331
  Transmission Date: 20141002
  Serious: Yes (Life-Threatening)
  Sender: FDA-Public Use
  Company Number: 2252659

PATIENT
  Age: 58 Year
  Sex: Male
  Weight: 53 kg

DRUGS (1)
  1. PACLITAXEL [Suspect]
     Indication: LUNG NEOPLASM MALIGNANT
     Route: 042
     Dates: start: 20140221, end: 20140221

REACTIONS (3)
  - Bronchospasm [None]
  - Pharyngeal oedema [None]
  - Erythema [None]
